FAERS Safety Report 8038240-5 (Version None)
Quarter: 2012Q1

REPORT INFORMATION
  Report Type: 
  Country: None (occurrence: None)
  Receive Date: 20120111
  Receipt Date: 20111209
  Transmission Date: 20120608
  Serious: No
  Sender: FDA-Public Use
  Company Number: US-AMGEN-USASP2011065901

PATIENT
  Age: 55 Year
  Sex: Female

DRUGS (2)
  1. ENBREL [Suspect]
     Indication: RHEUMATOID ARTHRITIS
     Dosage: 50 MG, QWK
     Dates: start: 20110422
  2. METHOTREXATE [Concomitant]
     Dosage: UNK
     Dates: start: 20110301

REACTIONS (8)
  - INJECTION SITE SWELLING [None]
  - HEADACHE [None]
  - BLOOD COUNT ABNORMAL [None]
  - HYPOKINESIA [None]
  - INJECTION SITE PRURITUS [None]
  - INJECTION SITE REACTION [None]
  - CONTUSION [None]
  - INJECTION SITE ERYTHEMA [None]
